FAERS Safety Report 5867236-4 (Version None)
Quarter: 2008Q3

REPORT INFORMATION
  Report Type: 
  Country: None (occurrence: None)
  Receive Date: 20080902
  Receipt Date: 20080806
  Transmission Date: 20090109
  Serious: Yes (Life-Threatening, Hospitalization)
  Sender: FDA-Public Use
  Company Number: JP-MERCK-0808USA01753

PATIENT
  Age: 37 Year
  Sex: Male

DRUGS (6)
  1. DECADRON SRC [Suspect]
     Indication: DEXAMETHASONE SUPPRESSION TEST
     Route: 048
     Dates: start: 20080305, end: 20080305
  2. DECADRON SRC [Suspect]
     Route: 048
     Dates: start: 20080306, end: 20080306
  3. CARDENALIN [Concomitant]
     Indication: HYPERTENSION
     Route: 048
     Dates: start: 20080307, end: 20080307
  4. POTASSIUM IODIDE [Concomitant]
     Indication: SCAN ADRENAL GLAND
     Route: 048
     Dates: start: 20080226, end: 20080303
  5. FLUDEOXYGLUCOSE F 18 [Concomitant]
     Indication: POSITRON EMISSION TOMOGRAM
     Route: 042
     Dates: start: 20080304, end: 20080304
  6. NORCHOLESTENOL IODOMETHYL I 131 [INJECTION] [Concomitant]
     Indication: SCAN ADRENAL GLAND
     Route: 042
     Dates: start: 20080228, end: 20080228

REACTIONS (9)
  - ABDOMINAL PAIN [None]
  - CARDIAC FAILURE [None]
  - CARDIOMYOPATHY [None]
  - ELECTROCARDIOGRAM ST SEGMENT DEPRESSION [None]
  - ELECTROCARDIOGRAM ST SEGMENT ELEVATION [None]
  - PHAEOCHROMOCYTOMA [None]
  - RESPIRATORY DISORDER [None]
  - TROPONIN I INCREASED [None]
  - VENTRICULAR EXTRASYSTOLES [None]
